FAERS Safety Report 20731030 (Version 1)
Quarter: 2022Q2

REPORT INFORMATION
  Report Type: Spontaneous
  Country: FR (occurrence: FR)
  Receive Date: 20220420
  Receipt Date: 20220420
  Transmission Date: 20220721
  Serious: Yes (Hospitalization)
  Sender: FDA-Public Use
  Company Number: None

PATIENT
  Age: 67 Year
  Sex: Male
  Weight: 90 kg

DRUGS (7)
  1. MIRTAZAPINE [Suspect]
     Active Substance: MIRTAZAPINE
     Indication: Suicide attempt
     Dosage: 90 MILLIGRAM (FORMULATION REPORTED AS ORODISPERSIBLE TABLET)
     Route: 048
     Dates: start: 20220217, end: 20220217
  2. MORPHINE SULFATE [Suspect]
     Active Substance: MORPHINE SULFATE
     Indication: Suicide attempt
     Dosage: 70 MILLIGRAM
     Route: 048
     Dates: start: 20220217, end: 20220217
  3. DOLIPRANE [Suspect]
     Active Substance: ACETAMINOPHEN
     Indication: Suicide attempt
     Dosage: 20 GRAM
     Route: 048
     Dates: start: 20220217, end: 20220217
  4. SKENAN [Suspect]
     Active Substance: MORPHINE SULFATE
     Indication: Suicide attempt
     Dosage: 70 MILLIGRAM (MICROGRANULES PROLONGED RELEASE AS CAPSULE)
     Route: 048
     Dates: start: 20220217, end: 20220217
  5. INIPOMP [Suspect]
     Active Substance: PANTOPRAZOLE SODIUM
     Indication: Suicide attempt
     Dosage: 280 MILLIGRAM
     Route: 048
     Dates: start: 20220217, end: 20220217
  6. EFFEXOR [Suspect]
     Active Substance: VENLAFAXINE HYDROCHLORIDE
     Indication: Suicide attempt
     Dosage: 750 MILLIGRAM
     Route: 048
     Dates: start: 20220217, end: 20220217
  7. ALLOPURINOL [Suspect]
     Active Substance: ALLOPURINOL
     Indication: Suicide attempt
     Dosage: 1400 MILLIGRAM
     Route: 048
     Dates: start: 20220217, end: 20220217

REACTIONS (4)
  - Miosis [Recovered/Resolved]
  - Coma [Recovered/Resolved]
  - Hypotension [Recovered/Resolved]
  - Bradypnoea [Recovered/Resolved]

NARRATIVE: CASE EVENT DATE: 20220217
